FAERS Safety Report 25663306 (Version 1)
Quarter: 2025Q3

REPORT INFORMATION
  Report Type: Spontaneous
  Country: TW (occurrence: TW)
  Receive Date: 20250811
  Receipt Date: 20250811
  Transmission Date: 20251021
  Serious: Yes (Other)
  Sender: ROCHE
  Company Number: TW-ROCHE-10000351918

PATIENT
  Age: 80 Year
  Sex: Male

DRUGS (2)
  1. ATEZOLIZUMAB [Suspect]
     Active Substance: ATEZOLIZUMAB
     Indication: Hepatocellular carcinoma
     Route: 065
  2. BEVACIZUMAB [Suspect]
     Active Substance: BEVACIZUMAB
     Indication: Hepatocellular carcinoma
     Route: 065

REACTIONS (5)
  - Alpha 1 foetoprotein increased [Recovering/Resolving]
  - Metastases to lung [Unknown]
  - Protein total increased [Recovering/Resolving]
  - Urine protein/creatinine ratio increased [Not Recovered/Not Resolved]
  - Vitamin K deficiency [Recovering/Resolving]
